FAERS Safety Report 5587220-8 (Version None)
Quarter: 2008Q1

REPORT INFORMATION
  Report Type: 
  Country: None (occurrence: None)
  Receive Date: 20080110
  Receipt Date: 20070810
  Transmission Date: 20080703
  Serious: No
  Sender: FDA-Public Use
  Company Number: US-BRISTOL-MYERS SQUIBB COMPANY-13875059

PATIENT
  Age: 59 Year
  Sex: Female

DRUGS (2)
  1. CARDIOLITE [Suspect]
     Indication: CARDIAC STRESS TEST
     Dates: start: 20070801
  2. THALLIUM [Suspect]
     Indication: CARDIAC STRESS TEST

REACTIONS (2)
  - COUGH [None]
  - WHEEZING [None]
